FAERS Safety Report 8721393 (Version 3)
Quarter: 2012Q4

REPORT INFORMATION
  Report Type: 
  Country: IT (occurrence: IT)
  Receive Date: 20120813
  Receipt Date: 20120917
  Transmission Date: 20130627
  Serious: Yes (Other)
  Sender: FDA-Public Use
  Company Number: IT-PFIZER INC-2012193376

PATIENT
  Age: 67 Year
  Sex: Female

DRUGS (13)
  1. OMEPRAZOLE [Suspect]
     Dosage: UNK
     Route: 065
  2. LINEZOLID [Interacting]
     Indication: NOCARDIOSIS
     Dosage: 600 mg, 2x/day (1 in 12 hours)
  3. LINEZOLID [Interacting]
     Dosage: 600 mg, alternate day (1 in 48 hours)
  4. LINEZOLID [Interacting]
     Dosage: 600 mg, 1x/day (1 in 24 hours)
  5. LINEZOLID [Interacting]
     Dosage: 400mg (600 mg, 1 in 36 hours)
  6. LINEZOLID [Interacting]
     Dosage: 200 mg (600 mg,1 in 72 hr)
  7. CARVEDILOL [Interacting]
     Dosage: UNK
     Route: 065
  8. BARNIDIPINE [Interacting]
     Dosage: UNK
  9. CYCLOSPORINE [Concomitant]
     Indication: HAEMOLYTIC ANAEMIA
     Route: 065
  10. PREDNISONE [Concomitant]
     Indication: HAEMOLYTIC ANAEMIA
     Route: 065
  11. DOXAZOSIN [Concomitant]
     Route: 065
  12. OXCARBAZEPINE [Concomitant]
     Route: 065
  13. MOTIVAL [Concomitant]
     Route: 065

REACTIONS (8)
  - Haematotoxicity [Recovered/Resolved]
  - Hyperlactacidaemia [Recovered/Resolved]
  - Drug interaction [Recovered/Resolved]
  - Red blood cell count decreased [Recovered/Resolved]
  - Haemoglobin decreased [Recovered/Resolved]
  - Platelet count decreased [Recovered/Resolved]
  - Inappropriate schedule of drug administration [Recovered/Resolved]
  - Self-medication [Recovered/Resolved]
